FAERS Safety Report 24973778 (Version 1)
Quarter: 2025Q1

REPORT INFORMATION
  Report Type: Spontaneous
  Country: MA (occurrence: MA)
  Receive Date: 20250217
  Receipt Date: 20250217
  Transmission Date: 20250408
  Serious: Yes (Other)
  Sender: IPCA
  Company Number: MA-IPCA LABORATORIES LIMITED-IPC-2025-MA-000367

PATIENT

DRUGS (3)
  1. CHLOROQUINE [Suspect]
     Active Substance: CHLOROQUINE
     Indication: Systemic lupus erythematosus
     Route: 065
     Dates: start: 2004
  2. CHLOROQUINE [Suspect]
     Active Substance: CHLOROQUINE
     Route: 065
     Dates: start: 2006
  3. PREDNISONE [Concomitant]
     Active Substance: PREDNISONE
     Indication: Systemic lupus erythematosus
     Route: 065
     Dates: start: 2006

REACTIONS (1)
  - Acute febrile neutrophilic dermatosis [Recovered/Resolved]
